FAERS Safety Report 16345561 (Version 1)
Quarter: 2019Q2

REPORT INFORMATION
  Report Type: Spontaneous
  Country: US (occurrence: US)
  Receive Date: 20190523
  Receipt Date: 20190523
  Transmission Date: 20190711
  Serious: Yes (Other)
  Sender: FDA-Public Use
  Company Number: US-CIPLA LTD.-2019US02877

PATIENT

DRUGS (1)
  1. TESTOSTERONE. [Suspect]
     Active Substance: TESTOSTERONE
     Indication: PRODUCT USED FOR UNKNOWN INDICATION
     Dosage: UNK
     Route: 065

REACTIONS (8)
  - Fatigue [Unknown]
  - Depression [Unknown]
  - Affect lability [Unknown]
  - Anxiety [Unknown]
  - Blood testosterone decreased [Unknown]
  - Tearfulness [Unknown]
  - Drug ineffective [Unknown]
  - Product gel formation [Unknown]
